FAERS Safety Report 14868322 (Version 2)
Quarter: 2018Q4

REPORT INFORMATION
  Report Type: Report from Study
  Country: KR (occurrence: KR)
  Receive Date: 20180509
  Receipt Date: 20181130
  Transmission Date: 20190204
  Serious: Yes (Death, Other)
  Sender: FDA-Public Use
  Company Number: KR-ROCHE-2119013

PATIENT
  Sex: Female

DRUGS (4)
  1. PACLITAXEL. [Suspect]
     Active Substance: PACLITAXEL
     Indication: OVARIAN CANCER RECURRENT
     Dosage: ON DAYS 1, 8, 15 AND 22 OF EACH 4-WEEK CYCLE
     Route: 042
  2. BEVACIZUMAB. [Suspect]
     Active Substance: BEVACIZUMAB
     Indication: OVARIAN CANCER RECURRENT
     Dosage: 10M/KG IV EVERY 2 WEEKS OR 15MG/KG IV EVERY 3 WEEKS
     Route: 042
  3. PEGYLATED LIPOSOMAL DOXORUBICIN [Suspect]
     Active Substance: DOXORUBICIN
     Indication: OVARIAN CANCER RECURRENT
     Route: 042
  4. TOPOTECAN [Suspect]
     Active Substance: TOPOTECAN HYDROCHLORIDE
     Indication: OVARIAN CANCER RECURRENT
     Dosage: 4MG/M2 IV ON DAYS 1, 8 AND 15 OF EACH 4-WEEK CYCLE, OR 1.25 MG/KG ON DAYS 1-5 OF EACH 3-WEEK CYCLE
     Route: 042

REACTIONS (17)
  - Sepsis [Fatal]
  - Proteinuria [Unknown]
  - Fistula [Unknown]
  - Abscess [Unknown]
  - Gastrointestinal perforation [Unknown]
  - Thrombocytopenia [Unknown]
  - Haemorrhage [Unknown]
  - Anaemia [Unknown]
  - Cerebrovascular accident [Fatal]
  - Intestinal perforation [Fatal]
  - Neutropenia [Unknown]
  - Hypertension [Unknown]
  - Impaired healing [Unknown]
  - Neutropenic infection [Fatal]
  - Embolism [Unknown]
  - Cardiac failure congestive [Unknown]
  - Palmar-plantar erythrodysaesthesia syndrome [Unknown]
